FAERS Safety Report 4466657-4 (Version None)
Quarter: 2004Q4

REPORT INFORMATION
  Report Type: 
  Country: None (occurrence: None)
  Receive Date: 20041001
  Receipt Date: 20041001
  Transmission Date: 20050328
  Serious: Yes (Death)
  Sender: FDA-Public Use
  Company Number: None

PATIENT
  Age: 86 Year
  Sex: Female
  Weight: 77.1115 kg

DRUGS (1)
  1. TAMOXIFEN CITRATE [Suspect]
     Indication: BREAST CANCER IN SITU
     Dosage: 20 MG   DAY   ORAL
     Route: 048
     Dates: start: 19990201, end: 20040201

REACTIONS (3)
  - BREAST CANCER METASTATIC [None]
  - HEPATIC NEOPLASM MALIGNANT [None]
  - HEPATORENAL SYNDROME [None]
